FAERS Safety Report 4591934-6 (Version None)
Quarter: 2005Q1

REPORT INFORMATION
  Report Type: 
  Country: None (occurrence: None)
  Receive Date: 20050222
  Receipt Date: 20050207
  Transmission Date: 20050727
  Serious: Yes (Other)
  Sender: FDA-Public Use
  Company Number: 200510542BCC

PATIENT
  Age: 29 Year
  Sex: Male
  Weight: 66.2705 kg

DRUGS (10)
  1. ALKA-SELTZER COLD AND FLU [Suspect]
  2. BC ALLERGY SINUS HEADACHE POWDER [Suspect]
     Indication: NASOPHARYNGITIS
     Dates: start: 20050104
  3. BC HEADACHE POWDER [Suspect]
     Indication: SINUS HEADACHE
     Dates: start: 20050101
  4. EXCEDRIN (MIGRAINE) [Suspect]
  5. TYLENOL SINUS MEDICATION [Suspect]
  6. DIPHENHYDRAMINE HCL [Suspect]
  7. PSEUDOEPHEDRINE HYDROCHLORIDE [Suspect]
  8. LORTAB [Concomitant]
  9. CARISOPRODOL [Concomitant]
  10. ALPRAZOLAM [Concomitant]

REACTIONS (7)
  - BLOOD GLUCOSE DECREASED [None]
  - BLOOD PRESSURE DECREASED [None]
  - DIZZINESS [None]
  - NAUSEA [None]
  - POLYSUBSTANCE ABUSE [None]
  - SYNCOPE [None]
  - VOMITING [None]
